FAERS Safety Report 6644797-9 (Version None)
Quarter: 2010Q1

REPORT INFORMATION
  Report Type: 
  Country: None (occurrence: None)
  Receive Date: 20100303
  Receipt Date: 20100217
  Transmission Date: 20100710
  Serious: Yes (Hospitalization, Disabling)
  Sender: FDA-Public Use
  Company Number: 2010021953

PATIENT
  Sex: Female

DRUGS (1)
  1. ZEMAIRA [Suspect]

REACTIONS (1)
  - CATARACT [None]
